FAERS Safety Report 13398059 (Version 2)
Quarter: 2017Q2

REPORT INFORMATION
  Report Type: Spontaneous
  Country: JP (occurrence: JP)
  Receive Date: 20170403
  Receipt Date: 20170421
  Transmission Date: 20170830
  Serious: Yes (Disabling)
  Sender: FDA-Public Use
  Company Number: JP-PFIZER INC-2017006694

PATIENT
  Age: 65 Year
  Sex: Male

DRUGS (4)
  1. AMBROXOL [Concomitant]
     Active Substance: AMBROXOL
     Indication: BRONCHITIS
     Dosage: 15 MG, 3X/DAY
     Route: 048
     Dates: start: 20161212, end: 20161214
  2. ZITHROMAC 250MG [Suspect]
     Active Substance: AZITHROMYCIN DIHYDRATE
     Indication: BRONCHITIS
     Dosage: 500 MG, DAILY
     Route: 048
     Dates: start: 20161212, end: 20161214
  3. SISAAL [Concomitant]
     Active Substance: DEXTROMETHORPHAN HYDROBROMIDE
     Indication: BRONCHITIS
     Dosage: 30 MG, 3X/DAY
     Route: 048
     Dates: start: 20161212, end: 20161214
  4. CARBOCISTEINE [Concomitant]
     Active Substance: CARBOCYSTEINE
     Indication: BRONCHITIS
     Dosage: 500 MG, 3X/DAY
     Route: 048
     Dates: start: 20161212, end: 20161214

REACTIONS (3)
  - Pruritus [Unknown]
  - Diffuse alopecia [Not Recovered/Not Resolved]
  - Drug eruption [Recovered/Resolved]

NARRATIVE: CASE EVENT DATE: 20161220
